FAERS Safety Report 20414240 (Version 1)
Quarter: 2022Q1

REPORT INFORMATION
  Report Type: Spontaneous
  Country: PT (occurrence: PT)
  Receive Date: 20220202
  Receipt Date: 20220202
  Transmission Date: 20220423
  Serious: Yes (Other)
  Sender: FDA-Public Use
  Company Number: PT-SUN PHARMACEUTICAL INDUSTRIES LTD-2022R1-324777

PATIENT
  Age: 4 Year

DRUGS (2)
  1. CLOBAZAM [Suspect]
     Active Substance: CLOBAZAM
     Indication: Hypothalamic hamartoma
     Dosage: UNK
     Route: 065
  2. VALPROIC ACID [Suspect]
     Active Substance: VALPROIC ACID
     Indication: Hypothalamic hamartoma
     Dosage: UNK
     Route: 065

REACTIONS (3)
  - Psychomotor disadaptation syndrome [Unknown]
  - Therapy non-responder [Unknown]
  - Epilepsy [Unknown]
